FAERS Safety Report 6926468-4 (Version None)
Quarter: 2010Q3

REPORT INFORMATION
  Report Type: 
  Country: None (occurrence: None)
  Receive Date: 20100816
  Receipt Date: 20100716
  Transmission Date: 20110219
  Serious: No
  Sender: FDA-Public Use
  Company Number: US-BAYER-201028154NA

PATIENT
  Age: 50 Year
  Sex: Female

DRUGS (3)
  1. BETASERON [Suspect]
     Indication: MULTIPLE SCLEROSIS
     Route: 058
  2. AMPYRA [Concomitant]
  3. ASPIRIN [Concomitant]
     Indication: PREMEDICATION

REACTIONS (2)
  - HEADACHE [None]
  - PAIN [None]
